FAERS Safety Report 20906543 (Version 1)
Quarter: 2022Q2

REPORT INFORMATION
  Report Type: Spontaneous
  Country: JP (occurrence: JP)
  Receive Date: 20220602
  Receipt Date: 20220602
  Transmission Date: 20220720
  Serious: Yes (Other)
  Sender: FDA-Public Use
  Company Number: JP-BAYER-2022A074831

PATIENT
  Sex: Male

DRUGS (17)
  1. EYLEA [Suspect]
     Active Substance: AFLIBERCEPT
     Indication: Age-related macular degeneration
     Dosage: LEFT EYE, ONCE, SOLUTION FOR INJECTION
     Route: 031
     Dates: start: 2015, end: 2015
  2. EYLEA [Suspect]
     Active Substance: AFLIBERCEPT
     Indication: Polypoidal choroidal vasculopathy
     Dosage: LEFT EYE, ONCE, SOLUTION FOR INJECTION
     Route: 031
     Dates: start: 2015, end: 2015
  3. EYLEA [Suspect]
     Active Substance: AFLIBERCEPT
     Dosage: LEFT EYE, ONCE, SOLUTION FOR INJECTION
     Route: 031
     Dates: start: 2015, end: 2015
  4. EYLEA [Suspect]
     Active Substance: AFLIBERCEPT
     Dosage: LEFT EYE, ONCE, SOLUTION FOR INJECTION
     Route: 031
     Dates: start: 2016, end: 2016
  5. EYLEA [Suspect]
     Active Substance: AFLIBERCEPT
     Dosage: LEFT EYE, ONCE, SOLUTION FOR INJECTION
     Route: 031
     Dates: start: 2016, end: 2016
  6. EYLEA [Suspect]
     Active Substance: AFLIBERCEPT
     Dosage: LEFT EYE, ONCE, SOLUTION FOR INJECTION
     Route: 031
     Dates: start: 2016, end: 2016
  7. EYLEA [Suspect]
     Active Substance: AFLIBERCEPT
     Dosage: LEFT EYE, ONCE, SOLUTION FOR INJECTION
     Route: 031
     Dates: start: 2016, end: 2016
  8. EYLEA [Suspect]
     Active Substance: AFLIBERCEPT
     Dosage: LEFT EYE, ONCE, SOLUTION FOR INJECTION
     Route: 031
     Dates: start: 2016, end: 2016
  9. EYLEA [Suspect]
     Active Substance: AFLIBERCEPT
     Dosage: LEFT EYE, ONCE, SOLUTION FOR INJECTION
     Route: 031
     Dates: start: 2017, end: 2017
  10. EYLEA [Suspect]
     Active Substance: AFLIBERCEPT
     Dosage: LEFT EYE, ONCE, SOLUTION FOR INJECTION
     Route: 031
     Dates: start: 2017, end: 2017
  11. EYLEA [Suspect]
     Active Substance: AFLIBERCEPT
     Dosage: LEFT EYE, ONCE, SOLUTION FOR INJECTION
     Route: 031
     Dates: start: 2018, end: 2018
  12. EYLEA [Suspect]
     Active Substance: AFLIBERCEPT
     Dosage: LEFT EYE, ONCE, SOLUTION FOR INJECTION
     Route: 031
     Dates: start: 2018, end: 2018
  13. EYLEA [Suspect]
     Active Substance: AFLIBERCEPT
     Dosage: LEFT EYE, ONCE, SOLUTION FOR INJECTION
     Route: 031
     Dates: start: 2020, end: 2020
  14. EYLEA [Suspect]
     Active Substance: AFLIBERCEPT
     Dosage: LEFT EYE, ONCE, SOLUTION FOR INJECTION
     Route: 031
     Dates: start: 20210121, end: 20210121
  15. EYLEA [Suspect]
     Active Substance: AFLIBERCEPT
     Dosage: LEFT EYE, ONCE, SOLUTION FOR INJECTION
     Route: 031
     Dates: start: 20210218, end: 20210218
  16. EYLEA [Suspect]
     Active Substance: AFLIBERCEPT
     Dosage: LEFT EYE, ONCE, SOLUTION FOR INJECTION
     Route: 031
     Dates: start: 20210325, end: 20210325
  17. EYLEA [Suspect]
     Active Substance: AFLIBERCEPT
     Dosage: LEFT EYE, ONCE, SOLUTION FOR INJECTION
     Route: 031
     Dates: start: 20210924, end: 20210924

REACTIONS (3)
  - Retinal vasculitis [Recovered/Resolved]
  - Non-infectious endophthalmitis [Recovered/Resolved]
  - Visual acuity reduced [Recovered/Resolved]

NARRATIVE: CASE EVENT DATE: 20210928
